FAERS Safety Report 20603971 (Version 1)
Quarter: 2022Q1

REPORT INFORMATION
  Report Type: Spontaneous
  Country: US (occurrence: US)
  Receive Date: 20220316
  Receipt Date: 20220316
  Transmission Date: 20220423
  Serious: No
  Sender: FDA-Public Use
  Company Number: US-SA-SAC20220309001582

PATIENT
  Age: 77 Year
  Sex: Female

DRUGS (2)
  1. DUPIXENT [Suspect]
     Active Substance: DUPILUMAB
     Indication: Dermatitis atopic
     Dosage: UNK, TOTAL
     Dates: start: 20220217, end: 20220217
  2. DUPIXENT [Suspect]
     Active Substance: DUPILUMAB
     Dosage: UNK

REACTIONS (5)
  - Paraesthesia [Unknown]
  - Feeling cold [Unknown]
  - Eczema [Recovering/Resolving]
  - Skin exfoliation [Not Recovered/Not Resolved]
  - Drug ineffective [Unknown]
